FAERS Safety Report 22593953 (Version 1)
Quarter: 2023Q2

REPORT INFORMATION
  Report Type: Spontaneous
  Country: US (occurrence: None)
  Receive Date: 20230612
  Receipt Date: 20230612
  Transmission Date: 20230721
  Serious: Yes (Hospitalization)
  Sender: FDA-Public Use
  Company Number: None

PATIENT
  Age: 75 Year
  Sex: Male
  Weight: 77.11 kg

DRUGS (13)
  1. ABIRATERONE [Suspect]
     Active Substance: ABIRATERONE
     Indication: Prostate cancer
     Dosage: FREQUENCY : DAILY;?
     Route: 048
     Dates: start: 202111
  2. ASPIRIN [Concomitant]
     Active Substance: ASPIRIN
  3. COLACE [Concomitant]
     Active Substance: DOCUSATE SODIUM
  4. FERROUS SULFATE [Concomitant]
     Active Substance: FERROUS SULFATE
  5. FLONASE [Concomitant]
     Active Substance: FLUTICASONE PROPIONATE
  6. PERCOCET [Concomitant]
     Active Substance: ACETAMINOPHEN\OXYCODONE HYDROCHLORIDE
  7. PLAVIX [Concomitant]
     Active Substance: CLOPIDOGREL BISULFATE
  8. PREDNISONE [Concomitant]
  9. SIMVASTATIN [Concomitant]
  10. VENLAFAXINE [Concomitant]
     Active Substance: VENLAFAXINE HYDROCHLORIDE
  11. VITAMIN B12 [Concomitant]
     Active Substance: CYANOCOBALAMIN
  12. VITAMIN C [Concomitant]
     Active Substance: ASCORBIC ACID
  13. VITAMIN D3 [Concomitant]
     Active Substance: CHOLECALCIFEROL

REACTIONS (3)
  - Internal haemorrhage [None]
  - Nephrolithiasis [None]
  - Sepsis [None]
